FAERS Safety Report 21112222 (Version 1)
Quarter: 2022Q3

REPORT INFORMATION
  Report Type: Spontaneous
  Country: US (occurrence: None)
  Receive Date: 20220721
  Receipt Date: 20220721
  Transmission Date: 20221027
  Serious: Yes (Death)
  Sender: FDA-Public Use
  Company Number: None

PATIENT
  Age: 64 Year
  Sex: Female
  Weight: 50.35 kg

DRUGS (17)
  1. COPIKTRA [Suspect]
     Active Substance: DUVELISIB
     Indication: Peripheral T-cell lymphoma unspecified
     Dosage: FREQUENCY : TWICE A DAY;?
     Route: 048
  2. DEXAMETHASONE [Suspect]
     Active Substance: DEXAMETHASONE
     Indication: Peripheral T-cell lymphoma unspecified
     Dosage: FREQUENCY : EVERY 12 HOURS;?
     Route: 048
  3. ACETAMINOPHEN [Concomitant]
     Active Substance: ACETAMINOPHEN
  4. ALBUTEROL [Concomitant]
     Active Substance: ALBUTEROL
  5. ALLOPURINOL [Concomitant]
     Active Substance: ALLOPURINOL
  6. DAPSONE [Concomitant]
     Active Substance: DAPSONE
  7. DIPHENHYDRAMINE [Concomitant]
     Active Substance: DIPHENHYDRAMINE
  8. DOXYCYCLINE [Concomitant]
     Active Substance: DOXYCYCLINE
  9. DUVELISIB [Concomitant]
     Active Substance: DUVELISIB
  10. FLUCONAZOLE [Concomitant]
     Active Substance: FLUCONAZOLE
  11. HEPARIN [Concomitant]
     Active Substance: HEPARIN SODIUM
  12. LEVOTHYROXINE [Concomitant]
     Active Substance: LEVOTHYROXINE
  13. METOCLOPRAMIDE [Concomitant]
     Active Substance: METOCLOPRAMIDE
  14. MIRALAX [Concomitant]
     Active Substance: POLYETHYLENE GLYCOL 3350
  15. ONDANSETRON [Concomitant]
     Active Substance: ONDANSETRON
  16. OXYCODONE [Concomitant]
     Active Substance: OXYCODONE
  17. VALACYCLOVIR [Concomitant]
     Active Substance: VALACYCLOVIR HYDROCHLORIDE

REACTIONS (1)
  - Death [None]
